FAERS Safety Report 8157204-4 (Version None)
Quarter: 2012Q1

REPORT INFORMATION
  Report Type: 
  Country: None (occurrence: None)
  Receive Date: 20120222
  Receipt Date: 20120216
  Transmission Date: 20120608
  Serious: Yes (Disabling)
  Sender: FDA-Public Use
  Company Number: GB-ROCHE-1040502

PATIENT
  Age: 46 Year
  Sex: Male
  Weight: 101.6 kg

DRUGS (1)
  1. TAMIFLU [Suspect]
     Indication: PRODUCT USED FOR UNKNOWN INDICATION
     Dates: start: 20091201, end: 20100101

REACTIONS (3)
  - MUSCLE INJURY [None]
  - POLYMYOSITIS [None]
  - BLOOD CREATINE PHOSPHOKINASE INCREASED [None]
